FAERS Safety Report 9922125 (Version 1)
Quarter: 2014Q1

REPORT INFORMATION
  Report Type: Spontaneous
  Country: IT (occurrence: IT)
  Receive Date: 20140225
  Receipt Date: 20140225
  Transmission Date: 20141002
  Serious: Yes (Hospitalization)
  Sender: FDA-Public Use
  Company Number: IT-GLAXOSMITHKLINE-B0971976A

PATIENT
  Age: 6 Year
  Sex: Male

DRUGS (1)
  1. NIQUITIN [Suspect]
     Indication: PRODUCT USED FOR UNKNOWN INDICATION
     Route: 048
     Dates: start: 20140217

REACTIONS (2)
  - Abdominal pain [Recovered/Resolved]
  - Accidental exposure to product by child [Recovered/Resolved]
